FAERS Safety Report 10906549 (Version 1)
Quarter: 2015Q1

REPORT INFORMATION
  Report Type: Spontaneous
  Country: US (occurrence: US)
  Receive Date: 20150312
  Receipt Date: 20150312
  Transmission Date: 20150721
  Serious: No
  Sender: FDA-Public Use
  Company Number: US-009507513-1503USA002991

PATIENT
  Sex: Female

DRUGS (3)
  1. PEGINTRON [Suspect]
     Active Substance: PEGINTERFERON ALFA-2B
     Indication: HEPATITIS C
     Dosage: 120 MG, ONCE A WEEK
     Dates: start: 2010
  2. INCIVEK [Suspect]
     Active Substance: TELAPREVIR
  3. REBETOL [Suspect]
     Active Substance: RIBAVIRIN
     Route: 048

REACTIONS (2)
  - Malaise [Recovering/Resolving]
  - Weight decreased [Recovering/Resolving]
